FAERS Safety Report 15998940 (Version 1)
Quarter: 2019Q1

REPORT INFORMATION
  Report Type: Spontaneous
  Country: JO (occurrence: JO)
  Receive Date: 20190223
  Receipt Date: 20190223
  Transmission Date: 20190418
  Serious: Yes (Death, Life-Threatening, Other)
  Sender: FDA-Public Use
  Company Number: JO-ACCORD-108936

PATIENT
  Age: 36 Year
  Sex: Female

DRUGS (5)
  1. MYCOPHENOLIC ACID. [Suspect]
     Active Substance: MYCOPHENOLIC ACID
     Indication: GLOMERULONEPHRITIS PROLIFERATIVE
     Dates: start: 2013, end: 201306
  2. METHYLPREDNISOLONE. [Suspect]
     Active Substance: METHYLPREDNISOLONE
     Indication: GLOMERULONEPHRITIS PROLIFERATIVE
     Dates: start: 20131226, end: 20131229
  3. RITUXIMAB. [Suspect]
     Active Substance: RITUXIMAB
     Indication: GLOMERULONEPHRITIS PROLIFERATIVE
     Dates: start: 20131226, end: 20131229
  4. CYCLOPHOSPHAMIDE. [Suspect]
     Active Substance: CYCLOPHOSPHAMIDE
     Indication: GLOMERULONEPHRITIS PROLIFERATIVE
     Route: 042
     Dates: start: 201306, end: 201308
  5. CYCLOPHOSPHAMIDE/CYCLOPHOSPHAMIDE MONOHYDRATE [Suspect]
     Active Substance: CYCLOPHOSPHAMIDE
     Indication: GLOMERULONEPHRITIS PROLIFERATIVE
     Dosage: 1000 MG I.V. FROM JUN-2013 TO AUG-2013
     Route: 042
     Dates: start: 201308, end: 20131212

REACTIONS (3)
  - Neutropenia [Unknown]
  - Posterior reversible encephalopathy syndrome [Recovered/Resolved]
  - Diarrhoea [Unknown]

NARRATIVE: CASE EVENT DATE: 2013
